FAERS Safety Report 24135939 (Version 1)
Quarter: 2024Q3

REPORT INFORMATION
  Report Type: Report from Study
  Country: BR (occurrence: BR)
  Receive Date: 20240725
  Receipt Date: 20240725
  Transmission Date: 20241016
  Serious: Yes (Other)
  Sender: JOHNSON AND JOHNSON
  Company Number: BR-JNJFOC-20240757867

PATIENT
  Age: 44 Year
  Sex: Female
  Weight: 54 kg

DRUGS (2)
  1. GOLIMUMAB [Suspect]
     Active Substance: GOLIMUMAB
     Indication: Psoriatic arthropathy
     Dosage: LAST ADMINISTRATION DATE WAS 29-JUN-2024
     Route: 058
  2. GOLIMUMAB [Suspect]
     Active Substance: GOLIMUMAB

REACTIONS (5)
  - Pneumonia [Recovering/Resolving]
  - Back pain [Recovering/Resolving]
  - Cough [Not Recovered/Not Resolved]
  - Musculoskeletal chest pain [Recovering/Resolving]
  - Pyrexia [Recovering/Resolving]

NARRATIVE: CASE EVENT DATE: 20240701
